FAERS Safety Report 16026342 (Version 1)
Quarter: 2019Q1

REPORT INFORMATION
  Report Type: Spontaneous
  Country: US (occurrence: US)
  Receive Date: 20190302
  Receipt Date: 20190302
  Transmission Date: 20190418
  Serious: No
  Sender: FDA-Public Use
  Company Number: US-NOVOPROD-628076

PATIENT
  Age: 57 Year
  Sex: Female

DRUGS (3)
  1. HUMIRA [Suspect]
     Active Substance: ADALIMUMAB
     Indication: PSORIATIC ARTHROPATHY
     Dosage: 40 MG, UNK (1 IN 2-2)
     Route: 058
     Dates: start: 20180330, end: 201805
  2. HUMIRA [Suspect]
     Active Substance: ADALIMUMAB
     Dosage: 40 MG, UNK (1 IN 2-2)
     Route: 058
     Dates: start: 2018, end: 20180817
  3. VICTOZA [Suspect]
     Active Substance: LIRAGLUTIDE
     Indication: POSTPRANDIAL HYPOGLYCAEMIA
     Dosage: UNK
     Route: 058
     Dates: start: 201807

REACTIONS (31)
  - Gait disturbance [Not Recovered/Not Resolved]
  - Arthralgia [Not Recovered/Not Resolved]
  - Loss of personal independence in daily activities [Recovering/Resolving]
  - Dyspnoea exertional [Unknown]
  - Alopecia [Not Recovered/Not Resolved]
  - Hypoglycaemia [Unknown]
  - Joint stiffness [Unknown]
  - Weight decreased [Unknown]
  - Fibromyalgia [Unknown]
  - Back pain [Not Recovered/Not Resolved]
  - Psoriasis [Recovering/Resolving]
  - Insomnia [Unknown]
  - Urinary tract infection [Recovering/Resolving]
  - Pruritus [Recovering/Resolving]
  - Injection site bruising [Recovered/Resolved]
  - Inflammation [Unknown]
  - Liver function test abnormal [Unknown]
  - Spinal osteoarthritis [Unknown]
  - Joint swelling [Not Recovered/Not Resolved]
  - Musculoskeletal stiffness [Not Recovered/Not Resolved]
  - Adrenal disorder [Unknown]
  - Food intolerance [Not Recovered/Not Resolved]
  - Mobility decreased [Not Recovered/Not Resolved]
  - Impaired self-care [Not Recovered/Not Resolved]
  - Upper respiratory tract infection [Unknown]
  - Vomiting [Not Recovered/Not Resolved]
  - Fatigue [Recovering/Resolving]
  - Blood test abnormal [Unknown]
  - Peripheral swelling [Not Recovered/Not Resolved]
  - Obesity [Unknown]
  - Condition aggravated [Unknown]

NARRATIVE: CASE EVENT DATE: 2018
